FAERS Safety Report 10181176 (Version 2)
Quarter: 2014Q2

REPORT INFORMATION
  Report Type: Spontaneous
  Country: US (occurrence: US)
  Receive Date: 20140519
  Receipt Date: 20140519
  Transmission Date: 20141212
  Serious: No
  Sender: FDA-Public Use
  Company Number: US-AMGEN INC.-USASP2014018359

PATIENT
  Age: 78 Year
  Sex: Female
  Weight: 50.34 kg

DRUGS (6)
  1. PROLIA [Suspect]
     Indication: OSTEOPOROSIS POSTMENOPAUSAL
     Dosage: 60 MG, Q6MO
     Route: 058
     Dates: start: 20140210
  2. XOPENEX [Concomitant]
     Indication: ASTHMA
     Route: 055
  3. SYMBICORT [Concomitant]
     Indication: ASTHMA
     Route: 055
  4. AMLODIPINE [Concomitant]
     Route: 048
  5. XANAX [Concomitant]
     Indication: ANXIETY
     Route: 048
  6. OMEPRAZOLE [Concomitant]
     Indication: GASTROOESOPHAGEAL REFLUX DISEASE
     Route: 048

REACTIONS (2)
  - Nerve compression [Unknown]
  - Muscle spasms [Recovered/Resolved]
